FAERS Safety Report 21142139 (Version 1)
Quarter: 2022Q3

REPORT INFORMATION
  Report Type: Spontaneous
  Country: US (occurrence: US)
  Receive Date: 20220728
  Receipt Date: 20220728
  Transmission Date: 20221027
  Serious: No
  Sender: FDA-Public Use
  Company Number: US-FERRINGPH-2021FE08433

PATIENT
  Sex: Female

DRUGS (3)
  1. ENDOMETRIN [Suspect]
     Active Substance: PROGESTERONE
     Indication: In vitro fertilisation
     Dosage: 2 EVERY THREE DAYS
     Route: 065
     Dates: start: 2021
  2. ENDOMETRIN [Suspect]
     Active Substance: PROGESTERONE
     Dosage: 1 EVERY THREE DAYS
     Route: 065
     Dates: start: 2021
  3. PROGESTERONE [Suspect]
     Active Substance: PROGESTERONE
     Indication: In vitro fertilisation
     Dosage: 1 IN OIL SHOT EVERY 3 DAYS
     Route: 065
     Dates: start: 2021

REACTIONS (2)
  - Vaginal haemorrhage [Not Recovered/Not Resolved]
  - Abdominal pain lower [Not Recovered/Not Resolved]

NARRATIVE: CASE EVENT DATE: 20211228
